FAERS Safety Report 23241534 (Version 3)
Quarter: 2024Q1

REPORT INFORMATION
  Report Type: Spontaneous
  Country: CA (occurrence: CA)
  Receive Date: 20231129
  Receipt Date: 20240105
  Transmission Date: 20240410
  Serious: Yes (Other)
  Sender: FDA-Public Use
  Company Number: CA-ORGANON-O2311CAN002819

PATIENT
  Age: 7 Year
  Sex: Female
  Weight: 45.351 kg

DRUGS (2)
  1. SINGULAIR [Suspect]
     Active Substance: MONTELUKAST SODIUM
     Indication: Asthma
     Dosage: 10 DOSAGE FORM, QD
     Route: 048
  2. ALBUTEROL [Concomitant]
     Active Substance: ALBUTEROL
     Route: 065

REACTIONS (6)
  - Anxiety [Recovered/Resolved with Sequelae]
  - Anger [Recovered/Resolved with Sequelae]
  - Affect lability [Recovered/Resolved with Sequelae]
  - Aggression [Recovered/Resolved with Sequelae]
  - Suicidal ideation [Recovered/Resolved with Sequelae]
  - Emotional distress [Recovered/Resolved with Sequelae]
